FAERS Safety Report 17711771 (Version 5)
Quarter: 2020Q3

REPORT INFORMATION
  Report Type: Spontaneous
  Country: TW (occurrence: TW)
  Receive Date: 20200427
  Receipt Date: 20200702
  Transmission Date: 20201102
  Serious: Yes (Hospitalization, Other)
  Sender: FDA-Public Use
  Company Number: TW-BRISTOL-MYERS SQUIBB COMPANY-BMS-2020-033128

PATIENT
  Age: 56 Year
  Sex: Female
  Weight: 46 kg

DRUGS (4)
  1. STIVARGA [Concomitant]
     Active Substance: REGORAFENIB
     Indication: PRODUCT USED FOR UNKNOWN INDICATION
     Dosage: UNK
     Route: 065
     Dates: start: 20200106
  2. STIVARGA [Concomitant]
     Active Substance: REGORAFENIB
     Dosage: 40 MILLIGRAM, QD
     Route: 065
     Dates: start: 20200406
  3. OPDIVO [Suspect]
     Active Substance: NIVOLUMAB
     Dosage: 140 MILLIGRAM
     Route: 065
     Dates: start: 20200406
  4. OPDIVO [Suspect]
     Active Substance: NIVOLUMAB
     Indication: COLON CANCER
     Dosage: 3 MILLIGRAM/KILOGRAM, Q2WK
     Route: 041
     Dates: start: 20191203

REACTIONS (3)
  - Rash [Recovered/Resolved]
  - Urinary tract infection [Recovering/Resolving]
  - Acute kidney injury [Unknown]

NARRATIVE: CASE EVENT DATE: 20200417
